FAERS Safety Report 8197861-X (Version None)
Quarter: 2012Q1

REPORT INFORMATION
  Report Type: 
  Country: None (occurrence: None)
  Receive Date: 20120309
  Receipt Date: 20120307
  Transmission Date: 20120608
  Serious: Yes (Other)
  Sender: FDA-Public Use
  Company Number: ZA-JNJFOC-20120304237

PATIENT
  Age: 53 Year
  Sex: Female

DRUGS (1)
  1. NICORETTE [Suspect]
     Indication: SMOKING CESSATION THERAPY
     Dosage: HALF A PIECE OF GUM, ABOUT FIVE PIECES A DAY, FOR SOME 16 YEARS
     Route: 048

REACTIONS (5)
  - SINUSITIS [None]
  - DEPENDENCE [None]
  - SEASONAL ALLERGY [None]
  - INTENTIONAL DRUG MISUSE [None]
  - WRONG TECHNIQUE IN DRUG USAGE PROCESS [None]
